FAERS Safety Report 23685101 (Version 1)
Quarter: 2024Q1

REPORT INFORMATION
  Report Type: Spontaneous
  Country: BE (occurrence: BE)
  Receive Date: 20240329
  Receipt Date: 20240329
  Transmission Date: 20240410
  Serious: Yes (Hospitalization)
  Sender: FDA-Public Use
  Company Number: BE-JNJFOC-20240357264

PATIENT
  Sex: Male

DRUGS (6)
  1. SPRAVATO [Interacting]
     Active Substance: ESKETAMINE
     Indication: Depression
  2. SPRAVATO [Interacting]
     Active Substance: ESKETAMINE
     Dosage: AS MAINTENANCE TREATMENT (56 OR 84 MG/WEEK)
  3. NORTRIPTYLINE [Interacting]
     Active Substance: NORTRIPTYLINE
     Indication: Depression
     Dosage: 4 X 25 MG/J
     Route: 065
  4. LAMOTRIGINE [Concomitant]
     Active Substance: LAMOTRIGINE
     Dosage: LAMPIPOL
  5. CLOTHIAPINE [Concomitant]
     Active Substance: CLOTHIAPINE
     Dosage: SOMETIMES TAKES
  6. AMISULPRIDE [Concomitant]
     Active Substance: AMISULPRIDE
     Dosage: SOMETIMES TAKES

REACTIONS (5)
  - Hepatic enzyme increased [Unknown]
  - Anaemia [Unknown]
  - Inflammation [Unknown]
  - Drug interaction [Unknown]
  - Fatigue [Recovering/Resolving]

NARRATIVE: CASE EVENT DATE: 20240101
